FAERS Safety Report 5924341-1 (Version None)
Quarter: 2008Q4

REPORT INFORMATION
  Report Type: 
  Country: None (occurrence: None)
  Receive Date: 20081015
  Receipt Date: 20081006
  Transmission Date: 20090506
  Serious: Yes (Life-Threatening, Hospitalization)
  Sender: FDA-Public Use
  Company Number: 99921

PATIENT
  Age: 84 Year
  Sex: Female

DRUGS (7)
  1. ECONAZOLE NITRATE [Suspect]
     Indication: DERMATITIS
     Dosage: 1%/ TID/ TOPICAL
     Route: 061
  2. ACENOCOUMAROL [Suspect]
     Indication: ATRIAL FIBRILLATION
     Dosage: 4 MG/ QD/ ORAL
     Route: 048
  3. ACENOCOUMAROL [Suspect]
     Indication: DEEP VEIN THROMBOSIS
     Dosage: 4 MG/ QD/ ORAL
     Route: 048
  4. ACENOCOUMAROL [Suspect]
     Indication: DISEASE RECURRENCE
     Dosage: 4 MG/ QD/ ORAL
     Route: 048
  5. IRBESARTAN [Concomitant]
  6. URAPIDIL/ [Concomitant]
  7. FUROSEMIDE [Concomitant]

REACTIONS (12)
  - ACTIVATED PARTIAL THROMBOPLASTIN TIME PROLONGED [None]
  - BLOOD PRESSURE DIASTOLIC DECREASED [None]
  - BLOOD PRESSURE SYSTOLIC INCREASED [None]
  - COAGULOPATHY [None]
  - DRUG INTERACTION [None]
  - HAEMATOMA [None]
  - HAEMOGLOBIN DECREASED [None]
  - INTERNATIONAL NORMALISED RATIO INCREASED [None]
  - LARYNGEAL DISORDER [None]
  - RENAL FAILURE [None]
  - RESPIRATORY FAILURE [None]
  - TONGUE HAEMATOMA [None]
